FAERS Safety Report 15781756 (Version 1)
Quarter: 2018Q4

REPORT INFORMATION
  Report Type: Spontaneous
  Country: US (occurrence: US)
  Receive Date: 20181212
  Receipt Date: 20181212
  Transmission Date: 20190205
  Serious: No
  Sender: FDA-Public Use
  Company Number: None

PATIENT
  Age: 84 Year
  Sex: Female

DRUGS (4)
  1. METOPROLOL. [Concomitant]
     Active Substance: METOPROLOL
  2. CELEBREX [Concomitant]
     Active Substance: CELECOXIB
  3. OMEPRAZOLE. [Concomitant]
     Active Substance: OMEPRAZOLE
  4. SILDENAFIL TAB 20 MG [Suspect]
     Active Substance: SILDENAFIL
     Route: 048
     Dates: start: 20180926, end: 20181130

REACTIONS (1)
  - Vision blurred [None]

NARRATIVE: CASE EVENT DATE: 20181130
